FAERS Safety Report 13987859 (Version 1)
Quarter: 2017Q3

REPORT INFORMATION
  Report Type: Spontaneous
  Country: IT (occurrence: IT)
  Receive Date: 20170919
  Receipt Date: 20170919
  Transmission Date: 20171128
  Serious: Yes (Hospitalization, Other)
  Sender: FDA-Public Use
  Company Number: IT-GILEAD-2017-0293274

PATIENT
  Age: 65 Year
  Sex: Female

DRUGS (2)
  1. KANRENOL [Concomitant]
     Active Substance: CANRENOATE POTASSIUM
     Dosage: 200 MG, UNK
     Route: 048
  2. EPCLUSA [Suspect]
     Active Substance: SOFOSBUVIR\VELPATASVIR
     Indication: CHRONIC HEPATITIS C
     Dosage: 1 DF, QD
     Route: 048
     Dates: start: 20170823, end: 20170906

REACTIONS (4)
  - Hepatic function abnormal [Unknown]
  - Peritonitis bacterial [Unknown]
  - Ascites [Unknown]
  - Liver disorder [Unknown]

NARRATIVE: CASE EVENT DATE: 20170906
